FAERS Safety Report 16223253 (Version 1)
Quarter: 2019Q2

REPORT INFORMATION
  Report Type: Spontaneous
  Country: US (occurrence: US)
  Receive Date: 20190422
  Receipt Date: 20190422
  Transmission Date: 20190711
  Serious: No
  Sender: FDA-Public Use
  Company Number: US-PFIZER INC-2019168869

PATIENT
  Age: 61 Year

DRUGS (1)
  1. LYRICA [Suspect]
     Active Substance: PREGABALIN
     Indication: DIABETIC NEUROPATHY
     Dosage: 4 DF, 2X/DAY (2 AT NIGHT AND 2 IN THE MORNING)

REACTIONS (3)
  - Insomnia [Unknown]
  - Paraesthesia [Unknown]
  - Product use issue [Unknown]
